FAERS Safety Report 4946416-6 (Version None)
Quarter: 2006Q1

REPORT INFORMATION
  Report Type: 
  Country: None (occurrence: None)
  Receive Date: 20060313
  Receipt Date: 20060228
  Transmission Date: 20060701
  Serious: Yes (Hospitalization, Other)
  Sender: FDA-Public Use
  Company Number: 2006031996

PATIENT
  Sex: Female

DRUGS (10)
  1. ARTHROTEC [Suspect]
     Indication: ARTHRITIS
     Dosage: UNK (50 MG, INTERVAL: DAILY), UNKNOWN
  2. ARTHROTEC [Suspect]
     Indication: INTERVERTEBRAL DISC DEGENERATION
     Dosage: UNK (50 MG, INTERVAL: DAILY), UNKNOWN
  3. ALL OTHER THERAPEUTIC PRODUCTS [Concomitant]
  4. VITAMIN E [Concomitant]
  5. ASCORBIC ACID [Concomitant]
  6. ALLEGRA-D 12 HOUR [Concomitant]
  7. BENADRYL [Concomitant]
  8. GARLIC [Concomitant]
  9. PROTONIX [Concomitant]
  10. MULTI-VITAMIN [Concomitant]

REACTIONS (6)
  - ANXIETY [None]
  - CARDIAC DISORDER [None]
  - COLON CANCER [None]
  - COLONIC POLYP [None]
  - DEPRESSION [None]
  - WEIGHT DECREASED [None]
